FAERS Safety Report 12099511 (Version 1)
Quarter: 2016Q1

REPORT INFORMATION
  Report Type: Spontaneous
  Country: ES (occurrence: ES)
  Receive Date: 20160222
  Receipt Date: 20160222
  Transmission Date: 20160526
  Serious: Yes (Hospitalization)
  Sender: FDA-Public Use
  Company Number: ES-BAUSCH-BL-2016-003416

PATIENT
  Age: 70 Year
  Sex: Male

DRUGS (4)
  1. OMEPRAZOL [Concomitant]
     Active Substance: OMEPRAZOLE
     Indication: PRODUCT USED FOR UNKNOWN INDICATION
     Route: 048
  2. ENALAPRIL + HIDROCLOROTIAZIDA [Concomitant]
     Indication: PRODUCT USED FOR UNKNOWN INDICATION
     Route: 048
  3. ELIDEL [Suspect]
     Active Substance: PIMECROLIMUS
     Indication: SKIN EXFOLIATION
     Route: 061
     Dates: start: 20151026, end: 20151128
  4. ALLOPURINOL. [Concomitant]
     Active Substance: ALLOPURINOL
     Indication: PRODUCT USED FOR UNKNOWN INDICATION
     Route: 048

REACTIONS (3)
  - Hyperglycaemia [Recovered/Resolved]
  - Polyuria [Recovered/Resolved]
  - Polydipsia [Recovered/Resolved]

NARRATIVE: CASE EVENT DATE: 20151128
